FAERS Safety Report 13471740 (Version 2)
Quarter: 2017Q2

REPORT INFORMATION
  Report Type: Report from Study
  Country: CN (occurrence: CN)
  Receive Date: 20170424
  Receipt Date: 20170615
  Transmission Date: 20170830
  Serious: Yes (Other)
  Sender: FDA-Public Use
  Company Number: CN-SUN PHARMACEUTICAL INDUSTRIES LTD-2017RR-138684

PATIENT
  Age: 64 Year
  Sex: Female

DRUGS (2)
  1. CISPLATIN. [Suspect]
     Active Substance: CISPLATIN
     Indication: THYROID CANCER
     Dosage: 30 MG/M2/WEEK FOR 3 CYCLES
     Route: 065
  2. GEMCITABINE [Suspect]
     Active Substance: GEMCITABINE\GEMCITABINE HYDROCHLORIDE
     Indication: THYROID CANCER
     Dosage: 1.0 G/M2 D1
     Route: 065

REACTIONS (3)
  - Thrombocytopenia [Recovered/Resolved]
  - Gastrointestinal toxicity [Recovered/Resolved]
  - Neutropenia [Recovered/Resolved]
